FAERS Safety Report 16998957 (Version 1)
Quarter: 2019Q4

REPORT INFORMATION
  Report Type: Spontaneous
  Country: US (occurrence: US)
  Receive Date: 20190924
  Receipt Date: 20190924
  Transmission Date: 20200122
  Serious: Yes (Hospitalization)
  Sender: FDA-Public Use
  Company Number: None

PATIENT
  Age: 32 Year
  Sex: Female
  Weight: 87.5 kg

DRUGS (1)
  1. ASPIRIN. [Suspect]
     Active Substance: ASPIRIN
     Dates: start: 20190908

REACTIONS (5)
  - Metastases to bone [None]
  - Mobility decreased [None]
  - Metastases to liver [None]
  - Muscle strain [None]
  - Muscle spasms [None]

NARRATIVE: CASE EVENT DATE: 20190908
